FAERS Safety Report 4866677-1 (Version None)
Quarter: 2005Q4

REPORT INFORMATION
  Report Type: 
  Country: None (occurrence: None)
  Receive Date: 20051221
  Receipt Date: 20051210
  Transmission Date: 20060501
  Serious: Yes (Other)
  Sender: FDA-Public Use
  Company Number: 2005168021

PATIENT

DRUGS (1)
  1. CABERGOLINE [Suspect]
     Indication: HYPERPROLACTINAEMIA
     Dosage: 0.5 MG (0.5 MG, FREQUENCY:  QD; INTERVAL:  TWICE WEEKLY), ORAL
     Route: 048
     Dates: start: 19960401, end: 20010701

REACTIONS (12)
  - AMENORRHOEA [None]
  - BURNING SENSATION [None]
  - DRUG INEFFECTIVE [None]
  - GALACTORRHOEA [None]
  - PAIN IN EXTREMITY [None]
  - PERIPHERAL COLDNESS [None]
  - PITUITARY TUMOUR [None]
  - PULSE PRESSURE DECREASED [None]
  - REFUSAL OF TREATMENT BY PATIENT [None]
  - SKIN DISCOLOURATION [None]
  - VASOCONSTRICTION [None]
  - VASOSPASM [None]
